FAERS Safety Report 6610654-7 (Version None)
Quarter: 2010Q1

REPORT INFORMATION
  Report Type: 
  Country: None (occurrence: None)
  Receive Date: 20100302
  Receipt Date: 20100223
  Transmission Date: 20100710
  Serious: Yes (Hospitalization)
  Sender: FDA-Public Use
  Company Number: A0845998A

PATIENT
  Age: 61 Year
  Sex: Female
  Weight: 81.8 kg

DRUGS (1)
  1. AVANDIA [Suspect]
     Route: 048

REACTIONS (4)
  - ARRHYTHMIA [None]
  - CARDIAC FAILURE CONGESTIVE [None]
  - FLUID RETENTION [None]
  - MYOCARDIAL INFARCTION [None]
